FAERS Safety Report 16138735 (Version 2)
Quarter: 2019Q2

REPORT INFORMATION
  Report Type: Spontaneous
  Country: US (occurrence: US)
  Receive Date: 20190401
  Receipt Date: 20190412
  Transmission Date: 20190711
  Serious: No
  Sender: FDA-Public Use
  Company Number: US-GLAXOSMITHKLINE-US2019056252

PATIENT
  Sex: Female

DRUGS (1)
  1. ABREVA [Suspect]
     Active Substance: DOCOSANOL
     Indication: PARAESTHESIA ORAL
     Dosage: 5 TIIMES A DAY

REACTIONS (2)
  - Product complaint [Unknown]
  - Drug ineffective [Unknown]
